FAERS Safety Report 10526949 (Version 2)
Quarter: 2014Q4

REPORT INFORMATION
  Report Type: Other
  Country: IT (occurrence: IT)
  Receive Date: 20141020
  Receipt Date: 20141121
  Transmission Date: 20150528
  Serious: Yes (Hospitalization)
  Sender: FDA-Public Use
  Company Number: IT-SUN PHARMACEUTICAL INDUSTRIES LTD-2014SUN02378

PATIENT
  Age: 62 Year
  Sex: Female
  Weight: 65 kg

DRUGS (4)
  1. LOBIVON [Concomitant]
     Active Substance: NEBIVOLOL HYDROCHLORIDE
  2. LEDERFOLIN [Concomitant]
     Active Substance: LEUCOVORIN CALCIUM
     Indication: COLON CANCER METASTATIC
     Dosage: 100 UG/M2
     Route: 042
     Dates: start: 20140922, end: 20140922
  3. OXALIPLATINO SUN 5 MG/ML, CONCENTRATO PER SOLUZIONE PER INFUSIONE [Suspect]
     Active Substance: OXALIPLATIN
     Indication: COLON CANCER METASTATIC
     Dosage: 85 MG/M2 CYCLICAL
     Route: 042
     Dates: start: 20140922, end: 20140922
  4. EUTIROX  75 MCG TABLET [Concomitant]

REACTIONS (3)
  - Electrocardiogram ST segment depression [Recovering/Resolving]
  - Syncope [Recovering/Resolving]
  - Acute coronary syndrome [None]

NARRATIVE: CASE EVENT DATE: 20140922
